FAERS Safety Report 12172331 (Version 1)
Quarter: 2016Q1

REPORT INFORMATION
  Report Type: Spontaneous
  Country: GB (occurrence: GB)
  Receive Date: 20160311
  Receipt Date: 20160311
  Transmission Date: 20160526
  Serious: Yes (Other)
  Sender: FDA-Public Use
  Company Number: GB-BAUSCH-BL-2016-005595

PATIENT
  Age: 47 Year
  Sex: Male

DRUGS (11)
  1. TACROLIMUS. [Concomitant]
     Active Substance: TACROLIMUS
     Indication: DERMATITIS ATOPIC
     Route: 065
  2. PREDNISOLONE. [Suspect]
     Active Substance: PREDNISOLONE
     Indication: DERMATITIS ATOPIC
     Dosage: 20-25 MG
     Route: 065
  3. PREDNISOLONE. [Suspect]
     Active Substance: PREDNISOLONE
     Route: 065
  4. CICLOSPORIN [Suspect]
     Active Substance: CYCLOSPORINE
     Indication: DERMATITIS ATOPIC
     Route: 065
  5. RITUXIMAB [Concomitant]
     Active Substance: RITUXIMAB
     Indication: DERMATITIS ATOPIC
     Dosage: FOR 4 WEEKS
     Route: 065
     Dates: start: 201208
  6. AZATHIOPRINE. [Suspect]
     Active Substance: AZATHIOPRINE
     Indication: PRODUCT USED FOR UNKNOWN INDICATION
     Route: 065
  7. MYCOPHENOLATE MOFETIL. [Concomitant]
     Active Substance: MYCOPHENOLATE MOFETIL
     Indication: DERMATITIS ATOPIC
     Route: 065
  8. FUMARIC ACID [Concomitant]
     Active Substance: FUMARIC ACID
     Indication: DERMATITIS ATOPIC
     Route: 065
  9. PREDNISOLONE. [Suspect]
     Active Substance: PREDNISOLONE
     Route: 065
  10. METHOTREXATE [Suspect]
     Active Substance: METHOTREXATE
     Indication: PRODUCT USED FOR UNKNOWN INDICATION
     Route: 065
  11. RITUXIMAB [Concomitant]
     Active Substance: RITUXIMAB
     Indication: DERMATITIS ATOPIC
     Dosage: 2 DOSES OF 1 G EACH GIVEN 2 WEEKS APART
     Route: 065
     Dates: start: 201305

REACTIONS (2)
  - Cushingoid [Unknown]
  - Skin infection [Unknown]
